FAERS Safety Report 6046463-X (Version None)
Quarter: 2009Q1

REPORT INFORMATION
  Report Type: 
  Country: None (occurrence: None)
  Receive Date: 20090122
  Receipt Date: 20090115
  Transmission Date: 20090719
  Serious: Yes (Death)
  Sender: FDA-Public Use
  Company Number: FR-CELGENEUS-AZAFR200800187

PATIENT
  Sex: Male

DRUGS (4)
  1. VIDAZA [Suspect]
     Indication: MYELODYSPLASTIC SYNDROME
     Route: 058
     Dates: start: 20070419, end: 20070425
  2. ZOPHREN [Suspect]
     Indication: MYELODYSPLASTIC SYNDROME
     Route: 048
     Dates: start: 20070419, end: 20070425
  3. CORDARONE [Concomitant]
     Indication: CARDIAC DISORDER
     Route: 065
  4. TAHOR [Concomitant]
     Route: 065

REACTIONS (1)
  - CARDIAC ARREST [None]
